FAERS Safety Report 5011328-9 (Version None)
Quarter: 2006Q2

REPORT INFORMATION
  Report Type: 
  Country: None (occurrence: None)
  Receive Date: 20060524
  Receipt Date: 20060512
  Transmission Date: 20061013
  Serious: Yes (Life-Threatening)
  Sender: FDA-Public Use
  Company Number: 2006PV013652

PATIENT
  Age: 84 Year
  Sex: Male
  Weight: 101.1521 kg

DRUGS (5)
  1. BYETTA [Suspect]
     Indication: DIABETES MELLITUS NON-INSULIN-DEPENDENT
     Dosage: 10 MCG;BID;SC
     Route: 058
     Dates: start: 20060117, end: 20060101
  2. INSULIN [Concomitant]
  3. ACTOS [Concomitant]
  4. COUMADIN [Concomitant]
  5. MULTIVITAMIN [Concomitant]

REACTIONS (5)
  - ANTI-PLATELET ANTIBODY POSITIVE [None]
  - INFECTION [None]
  - MYELODYSPLASTIC SYNDROME [None]
  - PANCYTOPENIA [None]
  - WOUND INFECTION [None]
